FAERS Safety Report 6127129-4 (Version None)
Quarter: 2009Q1

REPORT INFORMATION
  Report Type: 
  Country: None (occurrence: None)
  Receive Date: 20090320
  Receipt Date: 20090310
  Transmission Date: 20090719
  Serious: Yes (Other)
  Sender: FDA-Public Use
  Company Number: US-PFIZER INC-2009181277

PATIENT
  Sex: Female

DRUGS (3)
  1. GABAPENTIN [Suspect]
     Indication: NEURALGIA
     Dosage: FREQUENCY: DAILY;
     Dates: start: 20080101, end: 20080101
  2. PREDNISONE [Suspect]
     Dosage: UNK
  3. LEVOTHYROXINE SODIUM [Concomitant]
     Dosage: UNK

REACTIONS (6)
  - BLOOD PRESSURE ABNORMAL [None]
  - CONFUSIONAL STATE [None]
  - DISTURBANCE IN ATTENTION [None]
  - MACULAR DEGENERATION [None]
  - OPTIC ISCHAEMIC NEUROPATHY [None]
  - WEIGHT INCREASED [None]
